FAERS Safety Report 20109843 (Version 2)
Quarter: 2021Q4

REPORT INFORMATION
  Report Type: Spontaneous
  Country: US (occurrence: US)
  Receive Date: 20211124
  Receipt Date: 20211220
  Transmission Date: 20220303
  Serious: Yes (Hospitalization)
  Sender: FDA-Public Use
  Company Number: US-SUNOVION-2021SUN004413

PATIENT
  Sex: Male

DRUGS (1)
  1. LONHALA MAGNAIR [Suspect]
     Active Substance: GLYCOPYRROLATE
     Indication: Product used for unknown indication
     Dosage: 25 ?G, BID
     Route: 055

REACTIONS (6)
  - Surgery [Unknown]
  - Memory impairment [Unknown]
  - Device delivery system issue [Unknown]
  - Device electrical finding [Unknown]
  - Device issue [Unknown]
  - Incorrect dose administered [Unknown]
